FAERS Safety Report 6910590-2 (Version None)
Quarter: 2010Q3

REPORT INFORMATION
  Report Type: 
  Country: None (occurrence: None)
  Receive Date: 20100806
  Receipt Date: 20100730
  Transmission Date: 20110219
  Serious: Yes (Other)
  Sender: FDA-Public Use
  Company Number: US-SANOFI-AVENTIS-A03200704712

PATIENT
  Age: 73 Year
  Sex: Female
  Weight: 54.5 kg

DRUGS (24)
  1. AMBIEN [Suspect]
     Indication: SLEEP DISORDER
     Dosage: DOSE TEXT: CUT TABLETS, TAKING 1/2 A TABLET (5 MG)UNIT DOSE: 10 MG
     Route: 048
     Dates: start: 20060101
  2. AMBIEN [Suspect]
     Dosage: UNIT DOSE: 10 MG
     Route: 048
     Dates: start: 20061122, end: 20061122
  3. PROZAC [Concomitant]
     Route: 048
     Dates: start: 19980101
  4. ALEVE [Concomitant]
     Indication: ARTHRITIS
     Route: 048
  5. VIVELLE-DOT [Concomitant]
     Route: 061
  6. BUTALBITAL ACETAMINOPHEN AND CAFFEINE [Concomitant]
     Indication: HEADACHE
     Route: 048
  7. DICLOFENAC [Concomitant]
     Dosage: UNIT DOSE: 50 MG
     Route: 048
  8. WELLBUTRIN SR [Concomitant]
     Dosage: 150 MG X 2
     Route: 048
     Dates: start: 19980101
  9. TEMAZEPAM [Concomitant]
     Route: 048
     Dates: end: 20080401
  10. SULFAMETHOXAZOLE AND TRIMETHOPRIM [Concomitant]
     Route: 048
  11. LEVOTHYROXINE [Concomitant]
     Dosage: TAKE AS DIRECTED DOSE:0.112 UNIT(S)
     Route: 048
  12. LEVOTHYROXINE [Concomitant]
     Dosage: TAKE AS DIRECTED DOSE:0.100 UNIT(S)
     Route: 048
  13. CEPHALEXIN [Concomitant]
     Dosage: UNIT DOSE: 500 MG
     Route: 048
  14. ACETAMINOPHEN AND HYDROCODONE BITARTRATE [Concomitant]
     Dosage: DOSE TEXT: 5/500 MG
     Route: 048
  15. FLUTICASONE PROPIONATE [Concomitant]
     Route: 045
  16. METADATE CD [Concomitant]
     Dosage: UNIT DOSE: 40 MG
     Route: 048
  17. FOSAMAX [Concomitant]
     Dosage: UNIT DOSE: 70 MG
     Route: 048
  18. ACETAMINOPHEN AND OXYCODONE HCL [Concomitant]
     Dosage: DOSE TEXT: 5/325 MG
     Route: 048
  19. METHYLPHENIDATE [Concomitant]
     Route: 065
  20. PROPRANOLOL HYDROCHLORIDE [Concomitant]
     Route: 065
  21. LORAZEPAM [Concomitant]
  22. CHLORZOXAZONE [Concomitant]
     Dosage: 500 MG X 3
  23. METOCLOPRAMIDE [Concomitant]
     Dosage: TAKE 10 MG 1/2 TABLET BEFORE EVERY MEAL
     Route: 048
  24. OXYCODONE [Concomitant]
     Indication: PAIN

REACTIONS (9)
  - AMNESIA [None]
  - CONFUSIONAL STATE [None]
  - DISSOCIATIVE FUGUE [None]
  - IMPAIRED DRIVING ABILITY [None]
  - INTENTIONAL DRUG MISUSE [None]
  - OVERDOSE [None]
  - ROAD TRAFFIC ACCIDENT [None]
  - SLEEP-RELATED EATING DISORDER [None]
  - SOMNAMBULISM [None]
